FAERS Safety Report 7649963-1 (Version None)
Quarter: 2011Q3

REPORT INFORMATION
  Report Type: 
  Country: None (occurrence: None)
  Receive Date: 20110802
  Receipt Date: 20110728
  Transmission Date: 20111222
  Serious: Yes (Death, Hospitalization)
  Sender: FDA-Public Use
  Company Number: US-BRISTOL-MYERS SQUIBB COMPANY-15781941

PATIENT
  Age: 70 Year
  Sex: Male

DRUGS (15)
  1. COMPAZINE [Concomitant]
  2. TOPROL-XL [Concomitant]
     Dates: start: 20100101
  3. LOMOTIL [Concomitant]
     Dates: start: 20110517
  4. ASPIRIN [Concomitant]
  5. PEPCID [Concomitant]
  6. MULTI-VITAMINS [Concomitant]
  7. DEXA [Concomitant]
  8. NORCO [Concomitant]
     Dosage: 1DF-5/235(UNITS NOT SP)
  9. ZOCOR [Concomitant]
  10. PEPCID [Concomitant]
     Dates: start: 20110101
  11. DIPHENOXYLATE HCL + ATROPINE SULFATE [Concomitant]
     Dosage: 1-2TABS
  12. TOPROL-XL [Concomitant]
  13. NYSTATIN [Concomitant]
  14. IPILIMUMAB [Suspect]
     Indication: MALIGNANT MELANOMA
     Route: 042
     Dates: start: 20110316, end: 20110517
  15. KEPPRA [Concomitant]

REACTIONS (4)
  - DIARRHOEA [None]
  - NEOPLASM MALIGNANT [None]
  - ENTEROCOLITIS HAEMORRHAGIC [None]
  - DEHYDRATION [None]
